FAERS Safety Report 5580657-2 (Version None)
Quarter: 2008Q1

REPORT INFORMATION
  Report Type: 
  Country: None (occurrence: None)
  Receive Date: 20080103
  Receipt Date: 20071226
  Transmission Date: 20080703
  Serious: Yes (Other)
  Sender: FDA-Public Use
  Company Number: US-PFIZER INC-2008000090

PATIENT
  Sex: Female
  Weight: 45.4 kg

DRUGS (6)
  1. CHANTIX [Suspect]
     Indication: SMOKING CESSATION THERAPY
     Dates: start: 20071212, end: 20071222
  2. ADVAIR DISKUS 100/50 [Suspect]
     Indication: ASTHMA
  3. NORVASC [Concomitant]
     Indication: BLOOD PRESSURE
  4. ZYRTEC [Concomitant]
     Indication: HYPERSENSITIVITY
  5. VITAMIN CAP [Concomitant]
  6. CALCIUM [Concomitant]

REACTIONS (3)
  - ABDOMINAL PAIN [None]
  - MASS [None]
  - NAUSEA [None]
